FAERS Safety Report 23761650 (Version 1)
Quarter: 2024Q2

REPORT INFORMATION
  Report Type: Spontaneous
  Country: FR (occurrence: FR)
  Receive Date: 20240419
  Receipt Date: 20240419
  Transmission Date: 20240716
  Serious: Yes (Hospitalization)
  Sender: FDA-Public Use
  Company Number: FR-AFSSAPS-AN2024000487

PATIENT
  Age: 51 Year
  Sex: Female

DRUGS (10)
  1. DIAZEPAM [Interacting]
     Active Substance: DIAZEPAM
     Indication: Anxiety
     Dosage: 5 MILLIGRAM, ONCE A DAY
     Route: 048
     Dates: end: 20240319
  2. DIAZEPAM [Interacting]
     Active Substance: DIAZEPAM
     Dosage: 10 MILLIGRAM
     Route: 048
     Dates: end: 20240321
  3. TERALITHE [Interacting]
     Active Substance: LITHIUM CARBONATE
     Indication: Depression
     Dosage: 875 MILLIGRAM, ONCE A DAY
     Route: 048
     Dates: end: 20240311
  4. NARDIL [Interacting]
     Active Substance: PHENELZINE SULFATE
     Indication: Depression
     Dosage: 15 MILLIGRAM, ONCE A DAY
     Route: 048
     Dates: start: 20240214, end: 20240216
  5. NARDIL [Interacting]
     Active Substance: PHENELZINE SULFATE
     Dosage: 45 MILLIGRAM, ONCE A DAY
     Route: 048
     Dates: start: 20240217, end: 20240222
  6. NARDIL [Interacting]
     Active Substance: PHENELZINE SULFATE
     Dosage: 60 MILLIGRAM, ONCE A DAY
     Route: 048
     Dates: start: 20240223, end: 20240302
  7. NARDIL [Interacting]
     Active Substance: PHENELZINE SULFATE
     Dosage: 75 MILLIGRAM, ONCE A DAY
     Route: 048
     Dates: start: 20240303, end: 20240311
  8. MELATONIN [Concomitant]
     Active Substance: MELATONIN
     Indication: Product used for unknown indication
     Dosage: 1 DOSAGE FORM, ONCE A DAY
     Route: 048
  9. POLYETHYLENE GLYCOLS [Concomitant]
     Active Substance: POLYETHYLENE GLYCOLS
     Indication: Product used for unknown indication
     Dosage: 1 DOSAGE FORM, AS NECESSARY
     Route: 048
  10. ACETAMINOPHEN [Concomitant]
     Active Substance: ACETAMINOPHEN
     Indication: Product used for unknown indication
     Dosage: 1 GRAM (UP TO 4 GR)
     Route: 048

REACTIONS (5)
  - Cognitive disorder [Recovering/Resolving]
  - Dysarthria [Recovered/Resolved]
  - Balance disorder [Recovered/Resolved]
  - Disturbance in attention [Recovered/Resolved]
  - Drug interaction [Recovered/Resolved]

NARRATIVE: CASE EVENT DATE: 20240214
